FAERS Safety Report 9693496 (Version 2)
Quarter: 2013Q4

REPORT INFORMATION
  Report Type: Spontaneous
  Country: US (occurrence: US)
  Receive Date: 20131118
  Receipt Date: 20131118
  Transmission Date: 20140711
  Serious: No
  Sender: FDA-Public Use
  Company Number: US-ASTRAZENECA-2013SE22221

PATIENT
  Age: 40 Year
  Sex: Male

DRUGS (4)
  1. SEROQUEL [Suspect]
     Indication: SCHIZOPHRENIA
     Route: 048
     Dates: start: 2012, end: 20131025
  2. LISINOPRIL [Suspect]
     Route: 048
     Dates: start: 2011
  3. METFORMIN [Concomitant]
     Route: 048
     Dates: start: 2011
  4. ULTRAM [Concomitant]
     Route: 048
     Dates: start: 2011

REACTIONS (4)
  - Hallucination, auditory [Not Recovered/Not Resolved]
  - Activities of daily living impaired [Not Recovered/Not Resolved]
  - Neuralgia [Not Recovered/Not Resolved]
  - Intentional drug misuse [Not Recovered/Not Resolved]
